FAERS Safety Report 7411509-0 (Version None)
Quarter: 2011Q2

REPORT INFORMATION
  Report Type: 
  Country: None (occurrence: None)
  Receive Date: 20110413
  Receipt Date: 20110404
  Transmission Date: 20111010
  Serious: Yes (Other)
  Sender: FDA-Public Use
  Company Number: PHFR2011GB01769

PATIENT
  Sex: Female

DRUGS (2)
  1. CLOZARIL [Suspect]
     Dosage: 25 MG, QD
     Route: 048
     Dates: end: 20110308
  2. CLOZARIL [Suspect]
     Indication: SCHIZOPHRENIA
     Dosage: 25MG
     Route: 048
     Dates: start: 20110223

REACTIONS (6)
  - LYMPHADENOPATHY [None]
  - LIVER FUNCTION TEST ABNORMAL [None]
  - SALIVARY HYPERSECRETION [None]
  - ALANINE AMINOTRANSFERASE INCREASED [None]
  - SOMNOLENCE [None]
  - GAMMA-GLUTAMYLTRANSFERASE INCREASED [None]
